FAERS Safety Report 17448169 (Version 2)
Quarter: 2020Q2

REPORT INFORMATION
  Report Type: Spontaneous
  Country: US (occurrence: US)
  Receive Date: 20200222
  Receipt Date: 20200405
  Transmission Date: 20200713
  Serious: No
  Sender: FDA-Public Use
  Company Number: US-ELI_LILLY_AND_COMPANY-US202002008076

PATIENT
  Age: 59 Year
  Sex: Female

DRUGS (8)
  1. HUMULIN R U-500 [Suspect]
     Active Substance: INSULIN HUMAN
     Indication: TYPE 2 DIABETES MELLITUS
     Dosage: 80 U, EACH MORNING(70-80)
     Route: 058
     Dates: start: 20200216
  2. HUMULIN R U-500 [Suspect]
     Active Substance: INSULIN HUMAN
     Dosage: 60 U, DAILY(50-60 UNITS AT DINNER)
     Route: 058
     Dates: start: 20200216
  3. HUMULIN R U-500 [Suspect]
     Active Substance: INSULIN HUMAN
     Dosage: 70 U, BID
     Route: 065
  4. HUMULIN R U-500 [Suspect]
     Active Substance: INSULIN HUMAN
     Indication: TYPE 2 DIABETES MELLITUS
     Dosage: 80 U, EACH MORNING(70-80)
     Route: 058
     Dates: start: 20200216
  5. HUMULIN R U-500 [Suspect]
     Active Substance: INSULIN HUMAN
     Dosage: 70 U, DAILY(60-70 UNITS AT LUNCH)
     Route: 058
     Dates: start: 20200216
  6. HUMULIN R U-500 [Suspect]
     Active Substance: INSULIN HUMAN
     Dosage: 70 U, DAILY(60-70 UNITS AT LUNCH)
     Route: 058
     Dates: start: 20200216
  7. HUMULIN R U-500 [Suspect]
     Active Substance: INSULIN HUMAN
     Dosage: 60 U, DAILY(50-60 UNITS AT DINNER)
     Route: 058
     Dates: start: 20200216
  8. HUMULIN R U-500 [Suspect]
     Active Substance: INSULIN HUMAN
     Dosage: 70 U, BID
     Route: 065

REACTIONS (3)
  - Headache [Unknown]
  - Accidental underdose [Unknown]
  - Blood glucose decreased [Unknown]

NARRATIVE: CASE EVENT DATE: 20200216
